FAERS Safety Report 6054985-0 (Version None)
Quarter: 2009Q1

REPORT INFORMATION
  Report Type: 
  Country: None (occurrence: None)
  Receive Date: 20090128
  Receipt Date: 20090120
  Transmission Date: 20090719
  Serious: Yes (Death)
  Sender: FDA-Public Use
  Company Number: CA-NOVOPROD-280644

PATIENT
  Age: 79 Year
  Sex: Female
  Weight: 83 kg

DRUGS (1)
  1. NIASTASE [Suspect]
     Indication: HAEMORRHAGE
     Dosage: 2.4 MG, SINGLE
     Route: 042
     Dates: start: 20080919, end: 20080919

REACTIONS (1)
  - ISCHAEMIC STROKE [None]
